FAERS Safety Report 7296458-3 (Version None)
Quarter: 2011Q1

REPORT INFORMATION
  Report Type: 
  Country: None (occurrence: None)
  Receive Date: 20110216
  Receipt Date: 20110201
  Transmission Date: 20110831
  Serious: Yes (Death, Other)
  Sender: FDA-Public Use
  Company Number: PHHY2010US62861

PATIENT
  Sex: Female

DRUGS (2)
  1. TASIGNA [Suspect]
     Indication: GASTRIC CANCER
     Dosage: 400 MG, BID
     Route: 048
     Dates: end: 20100913
  2. METHADONE HYDROCHLORIDE [Concomitant]
     Indication: PAIN
     Dosage: 10 MG
     Dates: start: 20090610

REACTIONS (3)
  - DEATH [None]
  - DRUG INEFFECTIVE [None]
  - NEOPLASM MALIGNANT [None]
